FAERS Safety Report 4594655-9 (Version None)
Quarter: 2005Q1

REPORT INFORMATION
  Report Type: 
  Country: None (occurrence: None)
  Receive Date: 20050301
  Receipt Date: 20041201
  Transmission Date: 20050727
  Serious: No
  Sender: FDA-Public Use
  Company Number: US-BRISTOL-MYERS SQUIBB COMPANY-12781118

PATIENT
  Age: 75 Year
  Sex: Male

DRUGS (1)
  1. ERBITUX [Suspect]
     Dosage: SCHEDULED TO RECEIVE 400 MG
     Route: 042
     Dates: start: 20041101, end: 20041101

REACTIONS (3)
  - HOT FLUSH [None]
  - NAUSEA [None]
  - VOMITING [None]
